FAERS Safety Report 8190933 (Version 2)
Quarter: 2014Q2

REPORT INFORMATION
  Report Type: Spontaneous
  Country: US (occurrence: US)
  Receive Date: 20111020
  Receipt Date: 20140509
  Transmission Date: 20141212
  Serious: Yes (Other)
  Sender: FDA-Public Use
  Company Number: US-BAYER-2011-098617

PATIENT
  Age: 32 Year
  Sex: Female

DRUGS (2)
  1. YASMIN [Suspect]
     Dosage: UNK
     Dates: start: 200402, end: 200704
  2. OCELLA [Suspect]
     Dosage: UNK
     Dates: start: 200402, end: 200704

REACTIONS (5)
  - Cholecystectomy [None]
  - Pain [None]
  - Injury [None]
  - Dyspepsia [None]
  - Nausea [None]
